FAERS Safety Report 13180811 (Version 1)
Quarter: 2017Q1

REPORT INFORMATION
  Report Type: Spontaneous
  Country: US (occurrence: US)
  Receive Date: 20170202
  Receipt Date: 20170202
  Transmission Date: 20170428
  Serious: No
  Sender: FDA-Public Use
  Company Number: US-SMITH AND NEPHEW, INC-2016SMT00083

PATIENT
  Age: 91 Year
  Sex: Female
  Weight: 68.27 kg

DRUGS (5)
  1. VITAMIN B1 [Concomitant]
     Active Substance: THIAMINE HYDROCHLORIDE
     Dosage: UNK, 1X/DAY
  2. VITAMIN D3 [Concomitant]
     Active Substance: CHOLECALCIFEROL
     Dosage: 1000 IU, 1X/DAY
  3. PRAVASTATIN. [Concomitant]
     Active Substance: PRAVASTATIN
     Dosage: 1 TABLETS, 1X/DAY
  4. REGRANEX [Suspect]
     Active Substance: BECAPLERMIN
     Indication: SKIN ULCER
     Dosage: UNK, 1X/DAY
     Route: 061
     Dates: start: 20151205, end: 20151211
  5. RALOXIFENE. [Concomitant]
     Active Substance: RALOXIFENE
     Dosage: 60 MG, 1X/DAY

REACTIONS (5)
  - Rash [Recovered/Resolved]
  - Dizziness [Recovered/Resolved]
  - Sensory disturbance [Recovered/Resolved]
  - Erythema [Recovered/Resolved]
  - Hypersensitivity [Recovered/Resolved]

NARRATIVE: CASE EVENT DATE: 201512
